FAERS Safety Report 5424685-6 (Version None)
Quarter: 2007Q3

REPORT INFORMATION
  Report Type: 
  Country: None (occurrence: None)
  Receive Date: 20070822
  Receipt Date: 20070822
  Transmission Date: 20080115
  Serious: Yes (Death)
  Sender: FDA-Public Use
  Company Number: None

PATIENT
  Age: 78 Year
  Sex: Female
  Weight: 59.7 kg

DRUGS (1)
  1. CAPECITABINE [Suspect]

REACTIONS (2)
  - ADENOCARCINOMA PANCREAS [None]
  - MALIGNANT NEOPLASM PROGRESSION [None]
